FAERS Safety Report 6186758-2 (Version None)
Quarter: 2009Q2

REPORT INFORMATION
  Report Type: 
  Country: None (occurrence: None)
  Receive Date: 20090512
  Receipt Date: 20090430
  Transmission Date: 20091009
  Serious: Yes (Hospitalization)
  Sender: FDA-Public Use
  Company Number: RU-ROCHE-532924

PATIENT
  Sex: Male
  Weight: 105 kg

DRUGS (4)
  1. PEG-INTERFERON ALFA 2A (RO 25-8310) [Suspect]
     Dosage: DOSEAGE FORM: VIALS. DOSE FOR THE FIRST 12 WEEKS OF TREATMENT WAS DOUBLE BLINDED AFTER WHICH ALL PA+
     Route: 058
     Dates: start: 20070807
  2. PEG-INTERFERON ALFA 2A (RO 25-8310) [Suspect]
     Dosage: PERMANENTLY DISCONTINUED ON 19 NOVEMBER 2007. ROUTE: 14 WEEKS AND 6 DAYS.
     Route: 058
     Dates: end: 20071119
  3. RIBAVIRIN [Suspect]
     Dosage: DOSE BLINDED. THERAPY PERMANENTLY DISCONTINUED.
     Route: 048
     Dates: start: 20070807, end: 20071119
  4. EPOETIN ALFA [Concomitant]
     Dates: start: 20070921, end: 20071116

REACTIONS (1)
  - ALVEOLITIS FIBROSING [None]
